FAERS Safety Report 4263483-6 (Version None)
Quarter: 2004Q1

REPORT INFORMATION
  Report Type: 
  Country: None (occurrence: None)
  Receive Date: 20040105
  Receipt Date: 20031231
  Transmission Date: 20041129
  Serious: Yes (Other)
  Sender: FDA-Public Use
  Company Number: US-BRISTOL-MYERS SQUIBB COMPANY-12467098

PATIENT
  Age: 52 Year
  Sex: Female

DRUGS (1)
  1. GLUCOPHAGE [Suspect]

REACTIONS (3)
  - HYPERTENSION [None]
  - MACULAR OEDEMA [None]
  - OEDEMA PERIPHERAL [None]
